FAERS Safety Report 6613380-3 (Version None)
Quarter: 2010Q1

REPORT INFORMATION
  Report Type: 
  Country: None (occurrence: None)
  Receive Date: 20100210
  Receipt Date: 20100217
  Transmission Date: 20100710
  Serious: Yes (Other)
  Sender: FDA-Public Use
  Company Number: 2010SP009880

PATIENT
  Age: 57 Year
  Sex: Female
  Weight: 90 kg

DRUGS (7)
  1. TEMOZOLOMIDE [Suspect]
     Indication: GLIOBLASTOMA MULTIFORME
     Dosage: 150 MG, QD, PO
     Route: 048
     Dates: start: 20091217, end: 20100104
  2. SIMVASTATIN [Suspect]
     Indication: DRUG USE FOR UNKNOWN INDICATION
     Dosage: 40 MG, QD;
     Dates: end: 20091214
  3. CO-TRIMOXAZOLE [Concomitant]
  4. DALTEPARIN [Concomitant]
  5. DEXAMETHASONE [Concomitant]
  6. DOMPERIDONE [Concomitant]
  7. OMEPRAZOLE [Concomitant]

REACTIONS (4)
  - BLOOD ALKALINE PHOSPHATASE INCREASED [None]
  - BLOOD BILIRUBIN INCREASED [None]
  - DRUG INTERACTION [None]
  - GAMMA-GLUTAMYLTRANSFERASE INCREASED [None]
